FAERS Safety Report 6147104-3 (Version None)
Quarter: 2009Q2

REPORT INFORMATION
  Report Type: 
  Country: None (occurrence: None)
  Receive Date: 20090402
  Receipt Date: 20090319
  Transmission Date: 20091009
  Serious: Yes (Other)
  Sender: FDA-Public Use
  Company Number: JHP200900093

PATIENT
  Age: 37 Year
  Sex: Female

DRUGS (1)
  1. DANTRIUM [Suspect]
     Indication: MUSCLE RIGIDITY
     Dosage: 150 MG DAILY, AS OPENED CAPSULES THROUGH A TUBE, OTHER

REACTIONS (3)
  - ASTHENIA [None]
  - MUSCULAR WEAKNESS [None]
  - RESPIRATORY ARREST [None]
